FAERS Safety Report 16006004 (Version 1)
Quarter: 2019Q1

REPORT INFORMATION
  Report Type: Spontaneous
  Country: GB (occurrence: GB)
  Receive Date: 20190226
  Receipt Date: 20190226
  Transmission Date: 20190418
  Serious: Yes (Disabling)
  Sender: FDA-Public Use
  Company Number: None

PATIENT
  Age: 7 Year
  Sex: Male
  Weight: 30 kg

DRUGS (1)
  1. MONTELUKAST [Suspect]
     Active Substance: MONTELUKAST SODIUM
     Indication: ASTHMA
     Dosage: QUANTITY:1 TABLET(S);AT BEDTIME?
     Route: 048

REACTIONS (7)
  - Anxiety [None]
  - Hallucination, auditory [None]
  - Disturbance in attention [None]
  - Obsessive-compulsive symptom [None]
  - Insomnia [None]
  - Sleep terror [None]
  - Tic [None]

NARRATIVE: CASE EVENT DATE: 20180516
